FAERS Safety Report 10302870 (Version 2)
Quarter: 2014Q3

REPORT INFORMATION
  Report Type: Spontaneous
  Country: US (occurrence: US)
  Receive Date: 20140714
  Receipt Date: 20140714
  Transmission Date: 20150326
  Serious: No
  Sender: FDA-Public Use
  Company Number: US-BRISTOL-MYERS SQUIBB COMPANY-20693347

PATIENT
  Age: 44 Year
  Sex: Female

DRUGS (2)
  1. NULOJIX [Suspect]
     Active Substance: BELATACEPT
  2. PROGRAF [Suspect]
     Active Substance: TACROLIMUS\TACROLIMUS ANHYDROUS

REACTIONS (5)
  - Asthenia [Unknown]
  - Headache [Unknown]
  - Memory impairment [Unknown]
  - Vision blurred [Unknown]
  - Lymphadenopathy [Unknown]
